FAERS Safety Report 4943002-9 (Version None)
Quarter: 2006Q1

REPORT INFORMATION
  Report Type: 
  Country: None (occurrence: None)
  Receive Date: 20060314
  Receipt Date: 20060302
  Transmission Date: 20060701
  Serious: Yes (Life-Threatening, Other)
  Sender: FDA-Public Use
  Company Number: GB-GLAXOSMITHKLINE-B0414197A

PATIENT
  Age: 48 Year
  Sex: Female
  Weight: 35 kg

DRUGS (6)
  1. ROSIGLITAZONE [Suspect]
     Dosage: 4MG PER DAY
     Route: 048
     Dates: end: 20060218
  2. LISINOPRIL [Concomitant]
     Dosage: 20MG PER DAY
     Route: 048
  3. VENLAFAXINE HCL [Concomitant]
     Route: 048
  4. METFORMIN [Concomitant]
     Dosage: 500MG TWICE PER DAY
     Route: 048
  5. SIMVASTATIN [Concomitant]
     Dosage: 40MG PER DAY
     Route: 048
  6. LORAZEPAM [Concomitant]
     Dosage: 1MG AS REQUIRED
     Route: 048

REACTIONS (3)
  - CARDIAC FAILURE [None]
  - DYSPNOEA EXACERBATED [None]
  - PULMONARY OEDEMA [None]
